FAERS Safety Report 6844952-9 (Version None)
Quarter: 2010Q3

REPORT INFORMATION
  Report Type: 
  Country: None (occurrence: None)
  Receive Date: 20100713
  Receipt Date: 20100628
  Transmission Date: 20110219
  Serious: Yes (Hospitalization)
  Sender: FDA-Public Use
  Company Number: 2010002353

PATIENT
  Age: 55 Year
  Sex: Female

DRUGS (14)
  1. ERLOTINIB HYDROCHLORIDE [Suspect]
     Indication: NON-SMALL CELL LUNG CANCER
     Dosage: ORAL
     Route: 048
     Dates: start: 20091215
  2. BEVACIZUMAB [Suspect]
     Indication: CHEMOTHERAPY
     Dosage: (878 MG), INTRAVENOUS
     Route: 042
     Dates: start: 20100414
  3. PACLITAXEL [Suspect]
     Indication: CHEMOTHERAPY
     Dosage: (312 MG), INTRAVENOUS
     Route: 042
     Dates: start: 20100414
  4. CARBOPLATIN [Suspect]
     Indication: CHEMOTHERAPY
     Dosage: (740 MG), INTRAVENOUS
     Route: 042
     Dates: start: 20100414
  5. ZOLEDRONIC ACID [Concomitant]
  6. DECADRON [Concomitant]
  7. DIPHENHYDRAMINE HCL [Concomitant]
  8. FAMOTIDINE [Concomitant]
  9. ONDANSETRON [Concomitant]
  10. AMLODIPINE [Concomitant]
  11. DIPHENHYDRAMINE/MAALOX/LIDOCAIN/NYSTATIN [Concomitant]
  12. PROCHLORPERAZINE MALEATE [Concomitant]
  13. EFFEXOR [Concomitant]
  14. AMBIEN [Concomitant]

REACTIONS (6)
  - DIARRHOEA [None]
  - DYSPHAGIA [None]
  - FEBRILE NEUTROPENIA [None]
  - HEPATIC ENZYME INCREASED [None]
  - PHARYNGITIS [None]
  - URINARY TRACT INFECTION [None]
